FAERS Safety Report 7947949-0 (Version None)
Quarter: 2011Q4

REPORT INFORMATION
  Report Type: 
  Country: None (occurrence: None)
  Receive Date: 20111125
  Receipt Date: 20111108
  Transmission Date: 20120403
  Serious: Yes (Death)
  Sender: FDA-Public Use
  Company Number: FK201102673

PATIENT
  Age: 51 Year
  Sex: Female

DRUGS (17)
  1. TAMOXIFEN CITRATE [Suspect]
     Indication: BREAST CANCER
  2. LETROZOLE [Suspect]
     Indication: BREAST CANCER
  3. GEMCITABINE [Suspect]
     Indication: BREAST CANCER
  4. MITOMYCIN [Suspect]
  5. PACLITAXEL [Suspect]
     Indication: BREAST CANCER
  6. ARIMIDEX [Suspect]
     Indication: BREAST CANCER
  7. CYCLOPHOSPHAMIDE [Suspect]
     Indication: BREAST CANCER
  8. METHOTREXATE [Suspect]
     Indication: BREAST CANCER
  9. MEGESTROL ACETATE [Suspect]
  10. DOXORUBICIN HCL [Suspect]
     Indication: BREAST CANCER
  11. VINORELBINE [Suspect]
     Indication: BREAST CANCER
  12. EXEMESTANE [Suspect]
     Indication: BREAST CANCER
  13. CAPECITABINE [Suspect]
     Indication: BREAST CANCER
  14. MITOXANTRONE [Suspect]
     Indication: BREAST CANCER
  15. FULVESTRANT (FULVESTRANT) (FULVESTRANT) [Suspect]
     Indication: BREAST CANCER
  16. BEVACIZUMAB (BEVACIZUMAB) (BEVACIZUMAB) [Suspect]
     Indication: BREAST CANCER
  17. FUROSEMIDE [Concomitant]

REACTIONS (1)
  - HEPATIC FAILURE [None]
